FAERS Safety Report 15907056 (Version 2)
Quarter: 2019Q1

REPORT INFORMATION
  Report Type: Spontaneous
  Country: US (occurrence: US)
  Receive Date: 20190204
  Receipt Date: 20190315
  Transmission Date: 20190417
  Serious: No
  Sender: FDA-Public Use
  Company Number: US-PFIZER INC-2019041332

PATIENT
  Age: 82 Year
  Sex: Female

DRUGS (1)
  1. BOSULIF [Suspect]
     Active Substance: BOSUTINIB MONOHYDRATE
     Indication: NEURODEGENERATIVE DISORDER
     Dosage: 100 MG, 1X/DAY
     Route: 048
     Dates: start: 20181012

REACTIONS (5)
  - Product use in unapproved indication [Unknown]
  - Poor quality product administered [Unknown]
  - Product colour issue [Unknown]
  - Malaise [Unknown]
  - Product physical consistency issue [Unknown]

NARRATIVE: CASE EVENT DATE: 201810
